FAERS Safety Report 12743572 (Version 1)
Quarter: 2016Q3

REPORT INFORMATION
  Report Type: Spontaneous
  Country: KR (occurrence: KR)
  Receive Date: 20160914
  Receipt Date: 20160914
  Transmission Date: 20161109
  Serious: Yes (Hospitalization)
  Sender: FDA-Public Use
  Company Number: KR-SA-2015SA053414

PATIENT
  Age: 36 Year
  Sex: Female
  Weight: 52 kg

DRUGS (28)
  1. PERTUZUMAB [Suspect]
     Active Substance: PERTUZUMAB
     Indication: BREAST CANCER METASTATIC
     Route: 042
     Dates: start: 20150518
  2. PARACETAMOL [Concomitant]
     Active Substance: ACETAMINOPHEN
     Indication: PYREXIA
     Route: 048
     Dates: start: 20150208, end: 20150330
  3. MAXIPIME [Concomitant]
     Active Substance: CEFEPIME HYDROCHLORIDE
     Indication: CATHETER SITE INFECTION
     Route: 065
     Dates: start: 20150207, end: 20150327
  4. URSA [Concomitant]
     Indication: ASPARTATE AMINOTRANSFERASE INCREASED
     Dosage: 100 MG, 3 IN 1 DAY
     Route: 048
     Dates: start: 20150304, end: 20150330
  5. STILLEN [Concomitant]
     Route: 048
     Dates: start: 20150216, end: 20150223
  6. PERTUZUMAB [Suspect]
     Active Substance: PERTUZUMAB
     Indication: BREAST CANCER METASTATIC
     Route: 042
     Dates: start: 20150406
  7. PERTUZUMAB [Suspect]
     Active Substance: PERTUZUMAB
     Indication: BREAST CANCER METASTATIC
     Route: 042
     Dates: start: 20150427
  8. ULCERMIN [Concomitant]
     Active Substance: SUCRALFATE
     Route: 048
     Dates: start: 20150216, end: 20150223
  9. DOCETAXEL. [Suspect]
     Active Substance: DOCETAXEL
     Indication: BREAST CANCER METASTATIC
     Route: 042
     Dates: start: 20150129
  10. PERTUZUMAB [Suspect]
     Active Substance: PERTUZUMAB
     Indication: BREAST CANCER METASTATIC
     Route: 042
     Dates: start: 20150223
  11. NEURONTIN [Concomitant]
     Active Substance: GABAPENTIN
     Indication: CATHETER SITE INFECTION
     Route: 048
     Dates: start: 20150223, end: 20150308
  12. CARBOPLATIN. [Concomitant]
     Active Substance: CARBOPLATIN
     Route: 042
     Dates: start: 20150223, end: 20150223
  13. TRASTUZUMAB [Suspect]
     Active Substance: TRASTUZUMAB
     Indication: BREAST CANCER METASTATIC
     Route: 042
     Dates: start: 20150129
  14. ADELAVIN [Concomitant]
     Indication: ASPARTATE AMINOTRANSFERASE INCREASED
     Route: 065
     Dates: start: 20150304, end: 20150330
  15. STILNOX [Concomitant]
     Active Substance: ZOLPIDEM TARTRATE
     Indication: INSOMNIA
     Route: 048
     Dates: start: 20150323, end: 20150330
  16. PENIRAMIN [Concomitant]
     Indication: INFECTION PROPHYLAXIS
     Route: 042
     Dates: start: 20150128
  17. DEXAMETHASONE. [Concomitant]
     Active Substance: DEXAMETHASONE
     Route: 048
     Dates: start: 20150128
  18. CURAN [Concomitant]
     Active Substance: RANITIDINE HYDROCHLORIDE
     Indication: CATHETER SITE INFECTION
     Route: 048
     Dates: start: 20150128, end: 20150406
  19. UNASYN [Concomitant]
     Active Substance: AMPICILLIN SODIUM\SULBACTAM SODIUM
     Indication: CATHETER SITE INFECTION
     Route: 048
     Dates: start: 20150216, end: 20150304
  20. TANTUM [Concomitant]
     Active Substance: BENZYDAMINE HYDROCHLORIDE
     Indication: INFECTION PROPHYLAXIS
     Dosage: DOSE:20 %GARGLE 200ML/BTL
     Route: 048
     Dates: start: 20150128, end: 20150406
  21. DENOGAN [Concomitant]
     Active Substance: PROPACETAMOL HYDROCHLORIDE
     Indication: FEBRILE NEUTROPENIA
     Route: 042
     Dates: start: 20150207, end: 20150327
  22. KYTRIL [Concomitant]
     Active Substance: GRANISETRON HYDROCHLORIDE
     Indication: PROPHYLAXIS OF NAUSEA AND VOMITING
     Route: 048
     Dates: start: 20150223, end: 20150223
  23. PERTUZUMAB [Suspect]
     Active Substance: PERTUZUMAB
     Indication: BREAST CANCER METASTATIC
     Route: 042
     Dates: start: 20150129
  24. PERTUZUMAB [Suspect]
     Active Substance: PERTUZUMAB
     Indication: BREAST CANCER METASTATIC
     Route: 042
     Dates: start: 20150316
  25. LEGALON [Concomitant]
     Active Substance: MILK THISTLE
     Indication: ASPARTATE AMINOTRANSFERASE INCREASED
     Route: 048
     Dates: start: 20150304
  26. LOPERAMIDE [Concomitant]
     Active Substance: LOPERAMIDE
     Indication: DIARRHOEA
     Route: 048
     Dates: start: 20150305, end: 20150329
  27. PETHIDINE [Concomitant]
     Active Substance: MEPERIDINE
     Indication: FEBRILE NEUTROPENIA
     Route: 030
     Dates: start: 20150128, end: 20150327
  28. SMECTA [Concomitant]
     Active Substance: MONTMORILLONITE
     Indication: DIARRHOEA
     Dosage: 60 ML, 08-FEB-2015
     Route: 048
     Dates: start: 20150305

REACTIONS (11)
  - Hypokalaemia [Recovered/Resolved]
  - Febrile neutropenia [Not Recovered/Not Resolved]
  - Aspartate aminotransferase increased [Recovered/Resolved]
  - Anaemia [Not Recovered/Not Resolved]
  - Blood albumin decreased [Recovered/Resolved]
  - Insomnia [Recovered/Resolved]
  - Blood phosphorus decreased [Recovered/Resolved]
  - Alanine aminotransferase increased [Recovered/Resolved]
  - Diarrhoea [Recovered/Resolved]
  - Blood calcium decreased [Recovered/Resolved]
  - Febrile neutropenia [Recovered/Resolved]

NARRATIVE: CASE EVENT DATE: 20150207
